FAERS Safety Report 4654003-2 (Version None)
Quarter: 2005Q2

REPORT INFORMATION
  Report Type: 
  Country: None (occurrence: None)
  Receive Date: 20050504
  Receipt Date: 20050422
  Transmission Date: 20051028
  Serious: Yes (Other)
  Sender: FDA-Public Use
  Company Number: 008-20785-05040545

PATIENT
  Age: 47 Year
  Sex: Female

DRUGS (1)
  1. THALIDOMIDE - PHARMION (THALIDOMIDE) (50 MILLIGRAM, CAPSULES) [Suspect]
     Indication: CUTANEOUS LUPUS ERYTHEMATOSUS
     Dosage: 50 MG, DAILY, ORAL
     Route: 048
     Dates: start: 20040820, end: 20050413

REACTIONS (1)
  - NEPHROTIC SYNDROME [None]
